FAERS Safety Report 9775607 (Version 2)
Quarter: 2014Q1

REPORT INFORMATION
  Report Type: Spontaneous
  Country: US (occurrence: US)
  Receive Date: 20131220
  Receipt Date: 20140206
  Transmission Date: 20141002
  Serious: Yes (Hospitalization)
  Sender: FDA-Public Use
  Company Number: US-BAYER-2013-154892

PATIENT
  Age: 41 Year
  Sex: Female

DRUGS (9)
  1. OCELLA [Suspect]
     Dosage: UNK
     Dates: start: 201012, end: 201112
  2. YASMIN [Suspect]
     Dosage: UNK
     Dates: start: 2002, end: 201112
  3. HYDROCODONE POLISTIREX [Concomitant]
     Dosage: 10-8 MG/5 ML, ONE TEASPOON EVERY 12 HOURS
     Route: 048
  4. CHLORPHENIRAMINE POLISTIREX [Concomitant]
     Dosage: 10-8 MG/5 ML, ONE TEASPOON EVERY 12 HOURS
     Route: 048
  5. FLUCONAZOLE [Concomitant]
     Dosage: 150 MG, ONCE
     Route: 048
  6. PREDNISONE [Concomitant]
     Dosage: 20 MG, TID
  7. PREDNISONE [Concomitant]
     Dosage: 20 MG, BID
     Route: 048
  8. PREDNISONE [Concomitant]
     Dosage: 20 MG QD
  9. PREDNISONE [Concomitant]
     Dosage: 10 MG, QD

REACTIONS (1)
  - Pulmonary embolism [None]
